FAERS Safety Report 17202626 (Version 1)
Quarter: 2019Q4

REPORT INFORMATION
  Report Type: Spontaneous
  Country: FR (occurrence: FR)
  Receive Date: 20191226
  Receipt Date: 20191226
  Transmission Date: 20200122
  Serious: Yes (Hospitalization)
  Sender: FDA-Public Use
  Company Number: FR-MYLANLABS-2019M1126253

PATIENT
  Age: 41 Year
  Sex: Female

DRUGS (2)
  1. IMIPENEM CILASTATINE MYLAN [Suspect]
     Active Substance: IMIPENEM
     Indication: ENDOCARDITIS
     Dosage: 3 GRAM
     Route: 041
     Dates: start: 20190805, end: 20190820
  2. VANCOMYCINE MYLAN 1 G POUDRE POUR SOLUTION POUR PERFUSION [Suspect]
     Active Substance: VANCOMYCIN
     Indication: ENDOCARDITIS
     Dosage: 2 GRAM
     Route: 041
     Dates: start: 20190805, end: 20190819

REACTIONS (3)
  - Neutropenia [Recovering/Resolving]
  - Purpura [Recovered/Resolved]
  - Thrombocytopenia [Recovered/Resolved]

NARRATIVE: CASE EVENT DATE: 20190819
